FAERS Safety Report 8238984-6 (Version None)
Quarter: 2012Q1

REPORT INFORMATION
  Report Type: 
  Country: None (occurrence: None)
  Receive Date: 20120327
  Receipt Date: 20120321
  Transmission Date: 20120608
  Serious: Yes (Other)
  Sender: FDA-Public Use
  Company Number: PHHY2011CA18325

PATIENT
  Sex: Female

DRUGS (11)
  1. VITAMIN D [Concomitant]
  2. DILTIAZEM HCL [Concomitant]
  3. CALCIUM CARBONATE [Concomitant]
  4. ZOLEDRONOC ACID [Suspect]
     Indication: OSTEOPOROSIS
     Dosage: ANNUAL
     Route: 042
     Dates: start: 20110224
  5. VASOTEC [Concomitant]
  6. NAPROXEN [Concomitant]
  7. COUMADIN [Concomitant]
  8. IBUPROFEN (ADVIL) [Concomitant]
  9. LIPITOR [Concomitant]
  10. ASPIRIN [Concomitant]
  11. METOPROLOL SUCCINATE [Concomitant]

REACTIONS (8)
  - WEIGHT DECREASED [None]
  - MALAISE [None]
  - NAUSEA [None]
  - HYPERSOMNIA [None]
  - BONE PAIN [None]
  - DECREASED APPETITE [None]
  - DIZZINESS [None]
  - DECREASED ACTIVITY [None]
